FAERS Safety Report 8032605-3 (Version None)
Quarter: 2011Q4

REPORT INFORMATION
  Report Type: 
  Country: None (occurrence: None)
  Receive Date: 20111223
  Receipt Date: 20111214
  Transmission Date: 20120403
  Serious: Yes (Hospitalization)
  Sender: FDA-Public Use
  Company Number: 2011SP050176

PATIENT
  Age: 65 Year
  Sex: Male

DRUGS (24)
  1. HYDROXYZINE HCL [Concomitant]
  2. ACETAMINOPHEN [Concomitant]
  3. HYDROCODONE BITARTRATE [Concomitant]
  4. GLUCOSAMINE [Concomitant]
  5. ESOMEPRAZOLE MAGNESIUM [Concomitant]
  6. ACETAMINOPHEN [Concomitant]
  7. FISH OIL [Concomitant]
  8. KEPPRA [Concomitant]
  9. NEXIUM [Concomitant]
  10. ATORVASTATIN CALCIUM [Concomitant]
  11. TAMSULOSIN HCL [Concomitant]
  12. VITAMIN C [Concomitant]
  13. MULTI-VITAMIN [Concomitant]
  14. DEXAMETHASONE TAB [Concomitant]
  15. VITAMIN B COMPLEX CAP [Concomitant]
  16. TEMODAR [Suspect]
     Indication: GLIOBLASTOMA MULTIFORME
     Dosage: 75 MG/M2;QD;IV 150 MG/M2;QD;IV 100 MG/M2;QD;PO
     Route: 042
     Dates: start: 20110606, end: 20110718
  17. TEMODAR [Suspect]
     Indication: GLIOBLASTOMA MULTIFORME
     Dosage: 75 MG/M2;QD;IV 150 MG/M2;QD;IV 100 MG/M2;QD;PO
     Route: 042
     Dates: start: 20110823, end: 20110827
  18. TEMODAR [Suspect]
     Indication: GLIOBLASTOMA MULTIFORME
     Dosage: 75 MG/M2;QD;IV 150 MG/M2;QD;IV 100 MG/M2;QD;PO
     Route: 042
     Dates: start: 20110927, end: 20111001
  19. SULFAMETHOXAZOLE AND TRIMETHOPRIM [Concomitant]
  20. LEVETIRACETAM [Concomitant]
  21. LIPITOR [Concomitant]
  22. VICODIN [Concomitant]
  23. VITAMIN C [Concomitant]
  24. FLOMAX [Concomitant]

REACTIONS (12)
  - DIZZINESS [None]
  - FALL [None]
  - ATELECTASIS [None]
  - PLATELET COUNT DECREASED [None]
  - MUSCLE SPASMS [None]
  - HEAD INJURY [None]
  - FATIGUE [None]
  - ASTHENIA [None]
  - SYNCOPE [None]
  - PULMONARY EMBOLISM [None]
  - LUNG INFILTRATION [None]
  - INTERNATIONAL NORMALISED RATIO INCREASED [None]
